FAERS Safety Report 6933068-9 (Version None)
Quarter: 2010Q3

REPORT INFORMATION
  Report Type: 
  Country: None (occurrence: None)
  Receive Date: 20100819
  Receipt Date: 20100812
  Transmission Date: 20110219
  Serious: Yes (Hospitalization)
  Sender: FDA-Public Use
  Company Number: US-ABBOTT-10P-163-0663964-00

PATIENT
  Sex: Male
  Weight: 65.83 kg

DRUGS (4)
  1. HUMIRA [Suspect]
     Indication: CROHN'S DISEASE
     Route: 058
     Dates: start: 20090820, end: 20100701
  2. WELCHOL [Concomitant]
     Indication: CROHN'S DISEASE
  3. HYOSCYAMINE [Concomitant]
     Indication: CROHN'S DISEASE
  4. APRISO [Concomitant]
     Indication: CROHN'S DISEASE

REACTIONS (2)
  - CHEST X-RAY ABNORMAL [None]
  - HAEMOPTYSIS [None]
